FAERS Safety Report 8276442-3 (Version None)
Quarter: 2012Q2

REPORT INFORMATION
  Report Type: 
  Country: None (occurrence: None)
  Receive Date: 20120412
  Receipt Date: 20120405
  Transmission Date: 20120825
  Serious: No
  Sender: FDA-Public Use
  Company Number: US-PFIZER INC-2012087476

PATIENT

DRUGS (2)
  1. SEPTRA DS [Suspect]
     Dosage: UNK
  2. RELAFEN [Suspect]
     Dosage: UNK

REACTIONS (2)
  - ABDOMINAL PAIN [None]
  - HYPERSENSITIVITY [None]
